FAERS Safety Report 21449257 (Version 1)
Quarter: 2022Q4

REPORT INFORMATION
  Report Type: Spontaneous
  Country: US (occurrence: US)
  Receive Date: 20221013
  Receipt Date: 20221013
  Transmission Date: 20230113
  Serious: Yes (Hospitalization, Other)
  Sender: FDA-Public Use
  Company Number: US-SUN PHARMACEUTICAL INDUSTRIES LTD-2022R1-358597

PATIENT
  Age: 19 Year
  Sex: Male

DRUGS (2)
  1. ATENOLOL [Suspect]
     Active Substance: ATENOLOL
     Indication: Prophylaxis
     Dosage: 100 MILLIGRAM
     Route: 065
  2. LOSARTAN [Suspect]
     Active Substance: LOSARTAN
     Indication: Prophylaxis
     Dosage: 50 MILLIGRAM, DAILY
     Route: 065

REACTIONS (1)
  - Condition aggravated [Unknown]
